FAERS Safety Report 6651840-X (Version None)
Quarter: 2010Q1

REPORT INFORMATION
  Report Type: 
  Country: None (occurrence: None)
  Receive Date: 20100325
  Receipt Date: 20100311
  Transmission Date: 20100710
  Serious: Yes (Hospitalization, Other)
  Sender: FDA-Public Use
  Company Number: PHEH2007US11451

PATIENT
  Sex: Female
  Weight: 56.689 kg

DRUGS (18)
  1. AREDIA [Suspect]
     Dosage: UNK
  2. COUMADIN [Concomitant]
     Dosage: 7.5 MG, UNK
     Dates: start: 20040211
  3. PERCOCET [Concomitant]
  4. TEGRETOL [Concomitant]
     Dosage: 200 MG / DAILY
  5. DEPAKOTE [Concomitant]
     Indication: HYPOMANIA
     Dosage: UNK
  6. LYRICA [Concomitant]
     Dosage: 50 MG / QHS
  7. NEURONTIN [Concomitant]
     Indication: PAIN
     Dosage: 300 / TID
  8. VALTREX [Concomitant]
     Dosage: 1 GM / TID
  9. DYAZIDE [Concomitant]
     Indication: OEDEMA
     Dosage: UNK
  10. SERTRALINE HCL [Concomitant]
     Dosage: UNK
  11. AMANTADINE HCL [Concomitant]
     Dosage: 100 MG / TWICE DAILY
  12. CLONIDINE [Concomitant]
     Dosage: UNK
  13. CLONOPIN [Concomitant]
     Dosage: .05 MG / QHS
  14. ACYCLOVIR [Concomitant]
     Dosage: 1 GM / DAILY
  15. ACYCLOVIR [Concomitant]
     Dosage: 400 MG / DAILY
  16. ULTRAM [Concomitant]
     Indication: PAIN
     Dosage: UNK
  17. FLOVENT [Concomitant]
     Dosage: UNK
  18. XANAX [Concomitant]
     Dosage: UNK

REACTIONS (92)
  - ABDOMINAL PAIN [None]
  - ABDOMINAL PAIN UPPER [None]
  - AMAUROSIS FUGAX [None]
  - ANGIOLIPOMA [None]
  - ANHEDONIA [None]
  - ANTIPHOSPHOLIPID ANTIBODIES POSITIVE [None]
  - ANXIETY [None]
  - ARTHRALGIA [None]
  - BACK PAIN [None]
  - BACTERIAL DISEASE CARRIER [None]
  - BLISTER [None]
  - BONE GRAFT [None]
  - BONE SCAN ABNORMAL [None]
  - BREAST PAIN [None]
  - CEREBRAL ARTERY STENOSIS [None]
  - CONSTIPATION [None]
  - DECREASED APPETITE [None]
  - DEEP VEIN THROMBOSIS [None]
  - DENTAL PROSTHESIS USER [None]
  - DEPRESSION [None]
  - DISABILITY [None]
  - DIVERTICULUM [None]
  - ENDODONTIC PROCEDURE [None]
  - FACIAL PAIN [None]
  - FATIGUE [None]
  - FIBROCYSTIC BREAST DISEASE [None]
  - FIBROMYALGIA [None]
  - FRACTURED SACRUM [None]
  - GINGIVAL ABSCESS [None]
  - GINGIVAL INFECTION [None]
  - HAEMORRHOIDS [None]
  - HEADACHE [None]
  - HERPES ZOSTER [None]
  - HYPERAESTHESIA [None]
  - HYPOAESTHESIA [None]
  - HYPOMAGNESAEMIA [None]
  - INJURY [None]
  - INSOMNIA [None]
  - INTERVERTEBRAL DISC PROTRUSION [None]
  - IRRITABLE BOWEL SYNDROME [None]
  - JOINT STIFFNESS [None]
  - LIPOMA EXCISION [None]
  - LYMPHADENOPATHY [None]
  - MASS [None]
  - MASS EXCISION [None]
  - MASTECTOMY [None]
  - MERALGIA PARAESTHETICA [None]
  - MIGRAINE [None]
  - MUSCLE SPASMS [None]
  - MUSCULAR WEAKNESS [None]
  - MUSCULOSKELETAL CHEST PAIN [None]
  - MUSCULOSKELETAL PAIN [None]
  - NAUSEA [None]
  - NEUROPATHY PERIPHERAL [None]
  - NODULE [None]
  - OSTEONECROSIS [None]
  - OSTEOPOROSIS [None]
  - PAIN [None]
  - PAIN IN EXTREMITY [None]
  - PELVIC PAIN [None]
  - PITUITARY ENLARGEMENT [None]
  - PLANTAR FASCIITIS [None]
  - POLYARTERITIS NODOSA [None]
  - POLYP [None]
  - POSTMENOPAUSAL HAEMORRHAGE [None]
  - PSYCHOMOTOR HYPERACTIVITY [None]
  - RADICULOPATHY [None]
  - RASH VESICULAR [None]
  - RAYNAUD'S PHENOMENON [None]
  - RESTLESS LEGS SYNDROME [None]
  - RHEUMATOID ARTHRITIS [None]
  - ROTATOR CUFF SYNDROME [None]
  - SCIATICA [None]
  - SCOTOMA [None]
  - SINUSITIS [None]
  - SPINAL OSTEOARTHRITIS [None]
  - SYSTEMIC LUPUS ERYTHEMATOSUS [None]
  - THROMBOPHLEBITIS [None]
  - THROMBOPHLEBITIS MIGRANS [None]
  - TOOTH ABSCESS [None]
  - TOOTH EXTRACTION [None]
  - TOOTH REPAIR [None]
  - TRANSIENT ISCHAEMIC ATTACK [None]
  - URINARY RETENTION [None]
  - UTERINE CANCER [None]
  - VENOUS INSUFFICIENCY [None]
  - VERTIGO [None]
  - VISION BLURRED [None]
  - VISUAL ACUITY REDUCED [None]
  - VOMITING [None]
  - WOUND DEHISCENCE [None]
  - WOUND INFECTION STAPHYLOCOCCAL [None]
